FAERS Safety Report 9354816 (Version 1)
Quarter: 2013Q2

REPORT INFORMATION
  Report Type: Spontaneous
  Country: US (occurrence: None)
  Receive Date: 20130618
  Receipt Date: 20130618
  Transmission Date: 20140414
  Serious: Yes (Hospitalization)
  Sender: FDA-Public Use
  Company Number: None

PATIENT
  Age: 48 Year
  Sex: Female
  Weight: 82.9 kg

DRUGS (1)
  1. BORTEZOMIB [Suspect]
     Indication: DRUG SPECIFIC ANTIBODY PRESENT
     Dosage: 2.6 MG, 2.5 MG, 4 DOSES, IV
     Route: 042
     Dates: start: 20130422, end: 20130516

REACTIONS (5)
  - Neurotoxicity [None]
  - Peritonitis [None]
  - Confusional state [None]
  - Herpes zoster [None]
  - Staphylococcal infection [None]
